FAERS Safety Report 19730031 (Version 1)
Quarter: 2021Q3

REPORT INFORMATION
  Report Type: Spontaneous
  Country: DE (occurrence: DE)
  Receive Date: 20210820
  Receipt Date: 20210820
  Transmission Date: 20211014
  Serious: Yes (Hospitalization)
  Sender: FDA-Public Use
  Company Number: DE-TEVA-2021-DE-1942936

PATIENT
  Age: 88 Year
  Sex: Male

DRUGS (11)
  1. RAMIPRIL. [Suspect]
     Active Substance: RAMIPRIL
     Dosage: .5 DOSAGE FORMS DAILY; 5 MG, 0.5?0?0?0,
     Route: 048
  2. BENSERAZIDE/LEVODOPA [Suspect]
     Active Substance: BENSERAZIDE\LEVODOPA
     Dosage: 1 DOSAGE FORMS DAILY; 25|100 MG, 0?0?0?1,
     Route: 048
  3. FUROSEMID [Suspect]
     Active Substance: FUROSEMIDE
     Dosage: 80 MILLIGRAM DAILY;  1?1?0?0,
     Route: 048
  4. APIXABAN [Concomitant]
     Active Substance: APIXABAN
     Dosage: 5 MILLIGRAM DAILY;  1?0?1?0,
     Route: 048
  5. SITAGLIPTIN [Suspect]
     Active Substance: SITAGLIPTIN
     Dosage: 25 MILLIGRAM DAILY;  1?0?0?0,
     Route: 048
  6. KALIUMCITRAT [Concomitant]
     Active Substance: POTASSIUM CITRATE
     Dosage: 4314.6 MILLIGRAM DAILY; 2157.3 MG, 1?1?0?0,
     Route: 048
  7. PREGABALIN. [Concomitant]
     Active Substance: PREGABALIN
     Dosage: 2 DOSAGE FORMS DAILY; 75 MG, 0?0?2?0,
     Route: 048
  8. MIRTAZAPIN [Concomitant]
     Active Substance: MIRTAZAPINE
     Dosage: 15 MILLIGRAM DAILY;   0?0?0?1,
     Route: 048
  9. PANTOPRAZOL [Concomitant]
     Active Substance: PANTOPRAZOLE SODIUM
     Dosage: 40 MILLIGRAM DAILY;   0?0?1?0,
     Route: 048
  10. BISOPROLOL [Suspect]
     Active Substance: BISOPROLOL
     Dosage: 3 DOSAGE FORMS DAILY; 2.5 MG, 3?0?0?0,
     Route: 048
  11. METAMIZOL [Suspect]
     Active Substance: METAMIZOLE SODIUM
     Dosage: 1000 MILLIGRAM DAILY;  1?0?1?0,
     Route: 048

REACTIONS (3)
  - Pneumonia [Unknown]
  - Pain [Unknown]
  - Chest pain [Unknown]
